FAERS Safety Report 4869147-X (Version None)
Quarter: 2005Q4

REPORT INFORMATION
  Report Type: 
  Country: None (occurrence: None)
  Receive Date: 20051228
  Receipt Date: 20051228
  Transmission Date: 20060501
  Serious: Yes (Other)
  Sender: FDA-Public Use
  Company Number: None

PATIENT
  Sex: Male

DRUGS (4)
  1. WELLBUTRIN SR [Suspect]
     Dosage: 150 MG PO TID OVER ONE YR
     Route: 048
  2. CYMBALTA [Concomitant]
  3. SEROQUEL [Concomitant]
  4. KLONOPIN [Concomitant]

REACTIONS (2)
  - CONFUSIONAL STATE [None]
  - FEELING ABNORMAL [None]
